FAERS Safety Report 6316095-4 (Version None)
Quarter: 2009Q3

REPORT INFORMATION
  Report Type: 
  Country: None (occurrence: None)
  Receive Date: 20090820
  Receipt Date: 20090818
  Transmission Date: 20100115
  Serious: No
  Sender: FDA-Public Use
  Company Number: US-B.I. PHARMACEUTICALS,INC./RIDGEFIELD-2009-BP-08441BP

PATIENT
  Sex: Female

DRUGS (14)
  1. SPIRIVA [Suspect]
     Indication: CHRONIC OBSTRUCTIVE PULMONARY DISEASE
     Dosage: 18 MCG
     Route: 055
  2. SPIRIVA [Suspect]
     Indication: BRONCHITIS CHRONIC
     Route: 055
     Dates: start: 20090601
  3. SINGULAIR [Concomitant]
     Indication: BRONCHITIS CHRONIC
  4. METOPROLOL [Concomitant]
     Indication: TACHYCARDIA
  5. PREVACID [Concomitant]
     Indication: GASTROOESOPHAGEAL REFLUX DISEASE
  6. ALLEGRA [Concomitant]
     Indication: RHINITIS ALLERGIC
  7. MULTI-VITAMIN [Concomitant]
     Indication: PROPHYLAXIS
  8. TOPROL-XL [Concomitant]
  9. ALBUTEROL [Concomitant]
  10. ASPIRIN [Concomitant]
  11. FLEXERIL [Concomitant]
  12. IBUPROFEN [Concomitant]
  13. LORAZEPAM [Concomitant]
  14. FEXOFENADINE [Concomitant]

REACTIONS (1)
  - DYSPNOEA [None]
